FAERS Safety Report 6960515-9 (Version None)
Quarter: 2010Q3

REPORT INFORMATION
  Report Type: 
  Country: None (occurrence: None)
  Receive Date: 20100823
  Receipt Date: 20100624
  Transmission Date: 20110219
  Serious: No
  Sender: FDA-Public Use
  Company Number: 014759

PATIENT
  Sex: Female
  Weight: 75 kg

DRUGS (7)
  1. CIMZIA [Suspect]
     Indication: RHEUMATOID ARTHRITIS
     Dosage: (400 MG 1X/MONTH SUBCUTANEOUS)
     Route: 058
     Dates: start: 20091201
  2. FOLIC ACID [Concomitant]
  3. PREDNISONE [Concomitant]
  4. METHOTREXATE [Concomitant]
  5. CYMBALTA [Concomitant]
  6. NORTRIPTYLINE HCL [Concomitant]
  7. ALPRAZOLAM [Concomitant]

REACTIONS (3)
  - IMPAIRED HEALING [None]
  - LACERATION [None]
  - THERMAL BURN [None]
